FAERS Safety Report 10011473 (Version 1)
Quarter: 2014Q1

REPORT INFORMATION
  Report Type: Spontaneous
  Country: US (occurrence: None)
  Receive Date: 20140311
  Receipt Date: 20140311
  Transmission Date: 20141002
  Serious: Yes (Death)
  Sender: FDA-Public Use
  Company Number: FK201400684

PATIENT
  Age: 57 Year
  Sex: Male

DRUGS (2)
  1. ROPIVACAINE [Suspect]
     Indication: MUSCLE RELAXANT THERAPY
     Route: 042
  2. INTRALIPID [Concomitant]

REACTIONS (10)
  - Lethargy [None]
  - Bradycardia [None]
  - Tinnitus [None]
  - Dysgeusia [None]
  - Hallucination [None]
  - Electrocardiogram QRS complex prolonged [None]
  - Electrocardiogram QT prolonged [None]
  - Ejection fraction decreased [None]
  - Cardiac arrest [None]
  - Troponin I increased [None]
